FAERS Safety Report 10460452 (Version 2)
Quarter: 2015Q3

REPORT INFORMATION
  Report Type: Report from Study
  Country: US (occurrence: US)
  Receive Date: 20140917
  Receipt Date: 20150813
  Transmission Date: 20151125
  Serious: Yes (Other)
  Sender: FDA-Public Use
  Company Number: US-ROCHE-1463046

PATIENT
  Sex: Female
  Weight: 58.51 kg

DRUGS (4)
  1. NUTROPIN AQ [Suspect]
     Active Substance: SOMATROPIN
     Dosage: 04/APR/2013
     Route: 058
  2. NUTROPIN AQ [Suspect]
     Active Substance: SOMATROPIN
     Indication: HYPOPITUITARISM
     Dosage: QD
     Route: 058
  3. NUTROPIN AQ [Suspect]
     Active Substance: SOMATROPIN
     Indication: GROWTH HORMONE DEFICIENCY
     Dosage: 05/JAN/2011 AND 14/JAN/2011
     Route: 058
  4. NUTROPIN AQ [Suspect]
     Active Substance: SOMATROPIN
     Dosage: 11/APR/2013, 11/APR/2014
     Route: 058

REACTIONS (16)
  - Bone density abnormal [Unknown]
  - Headache [Not Recovered/Not Resolved]
  - Insulin-like growth factor increased [Unknown]
  - Acrochordon [Unknown]
  - Insulin-like growth factor decreased [Unknown]
  - Upper limb fracture [Unknown]
  - Nasopharyngitis [Unknown]
  - Blood cholesterol increased [Unknown]
  - Lordosis [Unknown]
  - Constipation [Unknown]
  - Back pain [Recovered/Resolved]
  - Vision blurred [Recovered/Resolved]
  - Glucose tolerance impaired [Unknown]
  - Kyphosis [Unknown]
  - Menorrhagia [Unknown]
  - Dry skin [Unknown]
